FAERS Safety Report 19706762 (Version 1)
Quarter: 2021Q3

REPORT INFORMATION
  Report Type: Spontaneous
  Country: US (occurrence: US)
  Receive Date: 20210816
  Receipt Date: 20210816
  Transmission Date: 20211014
  Serious: No
  Sender: FDA-Public Use
  Company Number: None

PATIENT
  Age: 31 Year
  Sex: Male

DRUGS (1)
  1. DOXYCYCLINE (DOXYCYCLINE HYCLATE 100MG TAB) [Suspect]
     Active Substance: DOXYCYCLINE HYCLATE
     Indication: SURGERY
     Route: 048
     Dates: start: 20210128, end: 20210131

REACTIONS (1)
  - Pancreatitis [None]

NARRATIVE: CASE EVENT DATE: 20210201
